FAERS Safety Report 6667665-5 (Version None)
Quarter: 2010Q2

REPORT INFORMATION
  Report Type: 
  Country: None (occurrence: None)
  Receive Date: 20100405
  Receipt Date: 20100331
  Transmission Date: 20101027
  Serious: Yes (Death)
  Sender: FDA-Public Use
  Company Number: B0644863A

PATIENT
  Sex: Male
  Weight: 120 kg

DRUGS (4)
  1. ZANAMIVIR [Suspect]
     Indication: H1N1 INFLUENZA
     Route: 042
     Dates: start: 20100116, end: 20100118
  2. LINEZOLID [Concomitant]
     Indication: SEPSIS
     Dosage: 600MG THREE TIMES PER DAY
     Route: 042
     Dates: start: 20100112, end: 20100122
  3. IMIPENEM [Concomitant]
     Indication: SEPSIS
     Dosage: .5G FOUR TIMES PER DAY
     Route: 042
     Dates: start: 20100104, end: 20100118
  4. VORICONAZOLE [Concomitant]
     Indication: SEPSIS
     Dosage: 400MG TWICE PER DAY
     Route: 042
     Dates: start: 20100112, end: 20100122

REACTIONS (1)
  - DEATH [None]
